FAERS Safety Report 4582358-6 (Version None)
Quarter: 2005Q1

REPORT INFORMATION
  Report Type: 
  Country: None (occurrence: None)
  Receive Date: 20050119
  Receipt Date: 20040116
  Transmission Date: 20050727
  Serious: Yes (Other)
  Sender: FDA-Public Use
  Company Number: US-JNJFOC-20030906575

PATIENT
  Age: 56 Year
  Sex: Female

DRUGS (1)
  1. DOXIL [Suspect]
     Indication: UTERINE LEIOMYOSARCOMA
     Dosage: 65 MG, INTRAVENOUS
     Route: 042
     Dates: start: 20030908, end: 20030908

REACTIONS (4)
  - CHEST PAIN [None]
  - HYPERHIDROSIS [None]
  - INFUSION RELATED REACTION [None]
  - THROAT TIGHTNESS [None]
